FAERS Safety Report 6146190-4 (Version None)
Quarter: 2009Q2

REPORT INFORMATION
  Report Type: 
  Country: None (occurrence: None)
  Receive Date: 20090407
  Receipt Date: 20090330
  Transmission Date: 20091009
  Serious: No
  Sender: FDA-Public Use
  Company Number: US-B.I. PHARMACEUTICALS,INC./RIDGEFIELD-2009-BP-04044BP

PATIENT
  Sex: Female

DRUGS (3)
  1. SPIRIVA [Suspect]
     Indication: CHRONIC OBSTRUCTIVE PULMONARY DISEASE
     Dosage: 18MCG
     Route: 055
     Dates: start: 20080501
  2. PULMICORT-100 [Suspect]
     Indication: CHRONIC OBSTRUCTIVE PULMONARY DISEASE
     Route: 055
     Dates: start: 20080301, end: 20080501
  3. FORTEO [Concomitant]
     Indication: OSTEOPOROSIS
     Dates: start: 20081101

REACTIONS (4)
  - CANDIDIASIS [None]
  - ERYTHEMA [None]
  - EYELID OEDEMA [None]
  - OCULAR HYPERAEMIA [None]
